FAERS Safety Report 24465884 (Version 1)
Quarter: 2024Q4

REPORT INFORMATION
  Report Type: Report from Study
  Country: US (occurrence: US)
  Receive Date: 20241018
  Receipt Date: 20241018
  Transmission Date: 20250114
  Serious: No
  Sender: ROCHE
  Company Number: US-ROCHE-3536271

PATIENT
  Age: 32 Year
  Sex: Male
  Weight: 94.35 kg

DRUGS (7)
  1. XOLAIR [Suspect]
     Active Substance: OMALIZUMAB
     Indication: Idiopathic urticaria
     Dosage: STRENGTH: 150 MG/ML
     Route: 058
     Dates: start: 20240328
  2. XOLAIR [Suspect]
     Active Substance: OMALIZUMAB
  3. EPINEPHRINE [Concomitant]
     Active Substance: EPINEPHRINE
  4. CLARITIN [Concomitant]
     Active Substance: LORATADINE
  5. PEPCID [Concomitant]
     Active Substance: FAMOTIDINE
  6. FISH OIL [Concomitant]
     Active Substance: FISH OIL
  7. PROBIOTIC ACIDOPHILUS [LACTOBACILLUS ACIDOPHILUS] [Concomitant]

REACTIONS (6)
  - Urticaria [Unknown]
  - Insomnia [Unknown]
  - Oropharyngeal pain [Unknown]
  - Pruritus [Unknown]
  - Erythema [Unknown]
  - Skin lesion [Unknown]
